FAERS Safety Report 7082527-X (Version None)
Quarter: 2010Q4

REPORT INFORMATION
  Report Type: 
  Country: None (occurrence: None)
  Receive Date: 20101104
  Receipt Date: 20101021
  Transmission Date: 20110411
  Serious: Yes (Life-Threatening, Hospitalization)
  Sender: FDA-Public Use
  Company Number: CH-BAYER-201043306GPV

PATIENT
  Age: 11 Year
  Sex: Female

DRUGS (4)
  1. CIPROXIN [Suspect]
     Indication: APPENDICITIS
     Dosage: TOTAL DAILY DOSE: 800 MG
     Route: 041
     Dates: start: 20100614, end: 20100706
  2. FLAGYL [Suspect]
     Indication: APPENDICITIS
     Dosage: TOTAL DAILY DOSE: 1500 MG
     Route: 041
     Dates: start: 20100612, end: 20100707
  3. ROCEPHIN [Suspect]
     Indication: PERITONITIS
     Dates: start: 20100612, end: 20100613
  4. DECAPEPTYL (TRIPTORELINE) [Concomitant]
     Indication: PRECOCIOUS PUBERTY
     Dates: start: 20071101

REACTIONS (7)
  - COLITIS [None]
  - HAEMOLYTIC URAEMIC SYNDROME [None]
  - HEPATIC ENZYME INCREASED [None]
  - RASH [None]
  - RENAL FAILURE ACUTE [None]
  - THROMBOTIC MICROANGIOPATHY [None]
  - THROMBOTIC THROMBOCYTOPENIC PURPURA [None]
